FAERS Safety Report 14261564 (Version 1)
Quarter: 2017Q4

REPORT INFORMATION
  Report Type: Spontaneous
  Country: US (occurrence: US)
  Receive Date: 20171208
  Receipt Date: 20171208
  Transmission Date: 20180321
  Serious: No
  Sender: FDA-Public Use
  Company Number: US-TEVA-2017-US-832128

PATIENT
  Age: 54 Year
  Sex: Male

DRUGS (8)
  1. PHENELZINE [Suspect]
     Active Substance: PHENELZINE
     Route: 065
     Dates: start: 20150410, end: 20150909
  2. ARIPIPRAZOLE. [Suspect]
     Active Substance: ARIPIPRAZOLE
     Dosage: UP TO 15MG/DAY, THEN INCREASED TO 20MG/DAY
     Dates: start: 20150123
  3. ARIPIPRAZOLE. [Suspect]
     Active Substance: ARIPIPRAZOLE
     Dosage: 20MG/DAY
     Dates: start: 20150123
  4. ARIPIPRAZOLE. [Suspect]
     Active Substance: ARIPIPRAZOLE
     Indication: MAJOR DEPRESSION
     Dosage: 1000MG/DAY, THEN DECREASED TO 300 MG/DAY
     Route: 065
  5. CLOMIPRAMINE [Concomitant]
     Active Substance: CLOMIPRAMINE
     Indication: MAJOR DEPRESSION
     Dosage: 300MG/DAY
     Route: 065
  6. ARIPIPRAZOLE. [Suspect]
     Active Substance: ARIPIPRAZOLE
     Indication: MAJOR DEPRESSION
     Dosage: UP TO 1200MG/DAY, THEN DECREASED TO 1000MG/DAY, THEN DECREASED TO 300MG/DAY
     Route: 065
  7. ARIPIPRAZOLE. [Suspect]
     Active Substance: ARIPIPRAZOLE
     Indication: MAJOR DEPRESSION
     Dosage: 300 MG AT BEDTIME
     Route: 065
  8. PHENELZINE [Suspect]
     Active Substance: PHENELZINE
     Dosage: EVERY MORNING, THEN INCREASED TO 30MG
     Route: 065
     Dates: start: 20150410, end: 20150909

REACTIONS (2)
  - Orthostatic hypotension [Unknown]
  - Fall [Unknown]
